FAERS Safety Report 8493368-0 (Version None)
Quarter: 2012Q2

REPORT INFORMATION
  Report Type: 
  Country: None (occurrence: None)
  Receive Date: 20120402
  Receipt Date: 20091113
  Transmission Date: 20120825
  Serious: Yes (Other)
  Sender: FDA-Public Use
  Company Number: PHEH2009US16132

PATIENT
  Age: 60 Year
  Sex: Female

DRUGS (8)
  1. PREVACID [Concomitant]
  2. DIOVAN HCT [Concomitant]
  3. BALACET [Concomitant]
  4. ZOLOFT [Concomitant]
  5. EXFORGE [Suspect]
     Dosage: 10/160
  6. ZOCOR [Concomitant]
  7. BYSTOLIC [Concomitant]
  8. XANAX [Concomitant]

REACTIONS (3)
  - PAIN IN EXTREMITY [None]
  - OEDEMA PERIPHERAL [None]
  - JOINT SWELLING [None]
